FAERS Safety Report 22020971 (Version 5)
Quarter: 2023Q2

REPORT INFORMATION
  Report Type: Spontaneous
  Country: US (occurrence: US)
  Receive Date: 20230222
  Receipt Date: 20230417
  Transmission Date: 20230721
  Serious: No
  Sender: FDA-Public Use
  Company Number: US-PFIZER INC-PV202300025152

PATIENT
  Age: 49 Year
  Sex: Female
  Weight: 99.79 kg

DRUGS (2)
  1. GENOTROPIN [Suspect]
     Active Substance: SOMATROPIN
     Indication: Hypopituitarism
     Dosage: 0.8 MG, DAILY
     Dates: start: 20190704
  2. GENOTROPIN [Suspect]
     Active Substance: SOMATROPIN
     Dosage: 0.8 MG, DAILY

REACTIONS (7)
  - Product quality issue [Unknown]
  - Device physical property issue [Unknown]
  - Intentional device misuse [Unknown]
  - Device difficult to use [Unknown]
  - Expired device used [Unknown]
  - Drug dose omission by device [Unknown]
  - Incorrect dose administered [Unknown]
